FAERS Safety Report 8311982-X (Version None)
Quarter: 2012Q2

REPORT INFORMATION
  Report Type: 
  Country: None (occurrence: None)
  Receive Date: 20120425
  Receipt Date: 20120423
  Transmission Date: 20120825
  Serious: Yes (Other)
  Sender: FDA-Public Use
  Company Number: US-BAYER-2012-030088

PATIENT
  Age: 24 Year
  Sex: Female
  Weight: 76.19 kg

DRUGS (1)
  1. MAGNEVIST [Suspect]
     Indication: NUCLEAR MAGNETIC RESONANCE IMAGING BRAIN
     Dosage: 15 ML, ONCE
     Route: 042
     Dates: start: 20120324, end: 20120324

REACTIONS (2)
  - PRURITUS [None]
  - SWOLLEN TONGUE [None]
